FAERS Safety Report 19216568 (Version 1)
Quarter: 2021Q2

REPORT INFORMATION
  Report Type: Spontaneous
  Country: US (occurrence: US)
  Receive Date: 20210505
  Receipt Date: 20210505
  Transmission Date: 20210717
  Serious: Yes (Hospitalization, Other)
  Sender: FDA-Public Use
  Company Number: US-SA-2021SA141257

PATIENT

DRUGS (6)
  1. CARDACE METO [Suspect]
     Active Substance: METOPROLOL\RAMIPRIL
     Dosage: UNK
     Route: 065
     Dates: end: 20201012
  2. PLAVIX [Suspect]
     Active Substance: CLOPIDOGREL BISULFATE
     Route: 065
  3. MIDODRINE [Concomitant]
     Active Substance: MIDODRINE
     Dosage: 2.5 MG, TID
  4. MIDODRINE [Concomitant]
     Active Substance: MIDODRINE
     Dosage: 15 MG, TID
     Dates: start: 20201013
  5. ACETYLSALICYLIC ACID [Suspect]
     Active Substance: ASPIRIN
     Route: 065
  6. RITODRINE [Suspect]
     Active Substance: RITODRINE
     Route: 065

REACTIONS (16)
  - Ascites [Unknown]
  - Swelling [Unknown]
  - Syncope [Unknown]
  - Dizziness [Unknown]
  - Hypotension [Unknown]
  - Gait disturbance [Unknown]
  - Ecchymosis [Unknown]
  - Electrocardiogram QT prolonged [Unknown]
  - Contusion [Unknown]
  - Balance disorder [Unknown]
  - Encephalopathy [Unknown]
  - Rehabilitation therapy [Unknown]
  - Vomiting [Unknown]
  - Asthenia [Unknown]
  - Presyncope [Unknown]
  - Haematoma [Unknown]

NARRATIVE: CASE EVENT DATE: 20200927
